FAERS Safety Report 8957546 (Version 1)
Quarter: 2012Q4

REPORT INFORMATION
  Report Type: 
  Country: US (occurrence: US)
  Receive Date: 20121211
  Receipt Date: 20121211
  Transmission Date: 20130627
  Serious: Yes (Hospitalization, Other)
  Sender: FDA-Public Use
  Company Number: US-AMGEN-USASP2012078336

PATIENT
  Sex: Female

DRUGS (3)
  1. XGEVA [Suspect]
     Indication: BREAST CANCER METASTATIC
     Dosage: UNK
  2. ANTINEOPLASTIC AGENTS [Concomitant]
     Indication: BREAST CANCER METASTATIC
  3. HORMONES [Concomitant]
     Indication: BREAST CANCER METASTATIC

REACTIONS (4)
  - Tetany [Not Recovered/Not Resolved]
  - Hypocalcaemia [Not Recovered/Not Resolved]
  - Bone disorder [Recovering/Resolving]
  - Osteolysis [Recovering/Resolving]
